FAERS Safety Report 13789178 (Version 2)
Quarter: 2017Q3

REPORT INFORMATION
  Report Type: Spontaneous
  Country: US (occurrence: US)
  Receive Date: 20170725
  Receipt Date: 20170816
  Transmission Date: 20171127
  Serious: No
  Sender: FDA-Public Use
  Company Number: US-009507513-1707USA008752

PATIENT
  Age: 47 Year
  Sex: Female
  Weight: 85.71 kg

DRUGS (1)
  1. FOSAMAX [Suspect]
     Active Substance: ALENDRONATE SODIUM
     Dosage: 1 TABLET ONCE A WEEK
     Dates: start: 20160707

REACTIONS (8)
  - Gastritis [Unknown]
  - High density lipoprotein decreased [Unknown]
  - C-reactive protein increased [Unknown]
  - Nausea [Unknown]
  - Blood triglycerides increased [Unknown]
  - Mean cell haemoglobin concentration decreased [Unknown]
  - Alanine aminotransferase increased [Unknown]
  - Drug intolerance [Unknown]

NARRATIVE: CASE EVENT DATE: 20170302
